FAERS Safety Report 8986316 (Version 2)
Quarter: 2013Q1

REPORT INFORMATION
  Report Type: Spontaneous
  Country: BR (occurrence: BR)
  Receive Date: 20121226
  Receipt Date: 20130318
  Transmission Date: 20140127
  Serious: Yes (Hospitalization)
  Sender: FDA-Public Use
  Company Number: BR-ELI_LILLY_AND_COMPANY-BR201212006994

PATIENT
  Sex: Male
  Weight: 76 kg

DRUGS (9)
  1. EFFIENT [Suspect]
     Indication: ANTIPLATELET THERAPY
     Dosage: UNK
     Route: 048
     Dates: start: 201209
  2. EFFIENT [Suspect]
     Dosage: UNK
     Route: 048
  3. TRIMETAZIDINE [Concomitant]
     Dosage: UNKNOWN
     Route: 065
  4. VALSARTAN [Concomitant]
     Dosage: UNKNOWN
     Route: 065
  5. VILDAGLIPTIN [Concomitant]
     Dosage: UNKNOWN
     Route: 065
  6. PIOGLITAZONE [Concomitant]
     Dosage: UNKNOWN
     Route: 065
  7. ATORVASTATIN [Concomitant]
     Dosage: UNKNOWN
     Route: 065
  8. OMEGA 3 [Concomitant]
     Dosage: UNKNOWN
     Route: 065
  9. ACETYLSALICYLIC ACID [Concomitant]
     Dosage: UNKNOWN
     Route: 065

REACTIONS (2)
  - Angioplasty [Recovered/Resolved]
  - Chest pain [Recovered/Resolved]
